FAERS Safety Report 13516803 (Version 1)
Quarter: 2017Q2

REPORT INFORMATION
  Report Type: Spontaneous
  Country: US (occurrence: US)
  Receive Date: 20170505
  Receipt Date: 20170505
  Transmission Date: 20170830
  Serious: No
  Sender: FDA-Public Use
  Company Number: US-BAYER-2017-084399

PATIENT
  Age: 3 Year
  Sex: Female

DRUGS (3)
  1. CLARITIN-D 24 HOUR [Suspect]
     Active Substance: LORATADINE\PSEUDOEPHEDRINE SULFATE
     Indication: NASAL CONGESTION
     Dosage: 5 DF, ONCE
     Route: 048
     Dates: start: 20170503, end: 20170503
  2. CLARITIN-D 24 HOUR [Suspect]
     Active Substance: LORATADINE\PSEUDOEPHEDRINE SULFATE
     Indication: NASAL CONGESTION
     Dosage: 7.5 MG, QD
     Dates: start: 20170503
  3. MULTIPLE VITAMINS [Concomitant]
     Active Substance: VITAMINS
     Dosage: 7.5 MG, ONCE

REACTIONS (1)
  - Accidental exposure to product by child [Unknown]

NARRATIVE: CASE EVENT DATE: 20170503
